FAERS Safety Report 13650686 (Version 1)
Quarter: 2017Q2

REPORT INFORMATION
  Report Type: Spontaneous
  Country: BG (occurrence: BG)
  Receive Date: 20170614
  Receipt Date: 20170614
  Transmission Date: 20170830
  Serious: Yes (Other)
  Sender: FDA-Public Use
  Company Number: BG-ASTRAZENECA-2017SE60417

PATIENT
  Age: 65 Year
  Sex: Male
  Weight: 150 kg

DRUGS (4)
  1. ACETYLSALICYLIC ACID [Concomitant]
     Active Substance: ASPIRIN
  2. CONCOR [Concomitant]
     Active Substance: BISOPROLOL FUMARATE
  3. VALTENSIN [Concomitant]
  4. BRILIQUE [Suspect]
     Active Substance: TICAGRELOR
     Indication: ANGINA UNSTABLE
     Route: 048
     Dates: start: 20170602, end: 20170603

REACTIONS (3)
  - Nodal rhythm [Recovered/Resolved]
  - Atrioventricular block [Unknown]
  - Heart rate decreased [Recovered/Resolved]

NARRATIVE: CASE EVENT DATE: 20170603
